FAERS Safety Report 4607053-6 (Version None)
Quarter: 2005Q1

REPORT INFORMATION
  Report Type: 
  Country: None (occurrence: None)
  Receive Date: 20050309
  Receipt Date: 20050222
  Transmission Date: 20050727
  Serious: No
  Sender: FDA-Public Use
  Company Number: USA050291516

PATIENT
  Sex: Male

DRUGS (1)
  1. STRATTERA [Suspect]
     Indication: ATTENTION DEFICIT/HYPERACTIVITY DISORDER
     Dates: start: 20041201, end: 20050101

REACTIONS (2)
  - ALANINE AMINOTRANSFERASE INCREASED [None]
  - ASPARTATE AMINOTRANSFERASE INCREASED [None]
